FAERS Safety Report 9711147 (Version 1)
Quarter: 2013Q4

REPORT INFORMATION
  Report Type: Spontaneous
  Country: US (occurrence: US)
  Receive Date: 20131126
  Receipt Date: 20131126
  Transmission Date: 20140711
  Serious: No
  Sender: FDA-Public Use
  Company Number: US-BRISTOL-MYERS SQUIBB COMPANY-19163401

PATIENT
  Age: 67 Year
  Sex: Male

DRUGS (6)
  1. BYDUREON [Suspect]
     Indication: TYPE 2 DIABETES MELLITUS
  2. BYETTA [Suspect]
  3. GLUCOPHAGE [Suspect]
     Indication: DIABETES MELLITUS
  4. GLIPIZIDE [Suspect]
     Indication: DIABETES MELLITUS
  5. ACTOS [Suspect]
     Indication: DIABETES MELLITUS
  6. LIPITOR [Concomitant]

REACTIONS (1)
  - Blood glucose increased [Unknown]
